FAERS Safety Report 5618227-X (Version None)
Quarter: 2008Q1

REPORT INFORMATION
  Report Type: 
  Country: None (occurrence: None)
  Receive Date: 20080204
  Receipt Date: 20080122
  Transmission Date: 20080703
  Serious: Yes (Other)
  Sender: FDA-Public Use
  Company Number: 2007AP000183

PATIENT
  Age: 47 Year
  Sex: Female

DRUGS (7)
  1. PAROXETINE HCL [Suspect]
     Indication: DEPRESSION
     Dosage: 30 MG;PO;QD; 20 MG;PO;QD
     Route: 048
     Dates: end: 20040101
  2. PAROXETINE HCL [Suspect]
     Indication: DEPRESSION
     Dosage: 30 MG;PO;QD; 20 MG;PO;QD
     Route: 048
     Dates: start: 19960101
  3. PAROXETINE HCL [Suspect]
     Indication: DEPRESSION
     Dosage: 30 MG;PO;QD; 20 MG;PO;QD
     Route: 048
     Dates: start: 20010101
  4. PAROXETINE HCL [Suspect]
     Indication: DEPRESSION
     Dosage: 30 MG;PO;QD; 20 MG;PO;QD
     Route: 048
     Dates: start: 20050501
  5. AMITRIPTYLINE HCL [Concomitant]
  6. DIAZEPAM [Concomitant]
  7. DOTHIEPIN HYDROCHLORIDE [Concomitant]

REACTIONS (13)
  - AGITATION [None]
  - BALANCE DISORDER [None]
  - CONFUSIONAL STATE [None]
  - DEPRESSED MOOD [None]
  - DRUG WITHDRAWAL SYNDROME [None]
  - HEADACHE [None]
  - NAUSEA [None]
  - NIGHTMARE [None]
  - PARAESTHESIA [None]
  - SLEEP DISORDER [None]
  - SUICIDAL IDEATION [None]
  - THINKING ABNORMAL [None]
  - TREMOR [None]
